FAERS Safety Report 8604918-5 (Version None)
Quarter: 2012Q3

REPORT INFORMATION
  Report Type: 
  Country: None (occurrence: None)
  Receive Date: 20120807
  Receipt Date: 20120723
  Transmission Date: 20120928
  Serious: Yes (Death, Other)
  Sender: FDA-Public Use
  Company Number: TPA2012A02097

PATIENT
  Age: 85 Year
  Sex: Male
  Weight: 73.4827 kg

DRUGS (4)
  1. PRECOSE [Concomitant]
  2. DIABETA [Concomitant]
  3. METFFORMIN HYDROCHLORIDE [Concomitant]
  4. ACTOS [Suspect]
     Indication: TYPE 2 DIABETES MELLITUS
     Dosage: 1 IN 1 D
     Dates: start: 20050101, end: 20110801

REACTIONS (2)
  - METASTATIC CARCINOMA OF THE BLADDER [None]
  - RENAL FAILURE [None]
